FAERS Safety Report 13032353 (Version 1)
Quarter: 2016Q4

REPORT INFORMATION
  Report Type: Spontaneous
  Country: US (occurrence: US)
  Receive Date: 20161215
  Receipt Date: 20161215
  Transmission Date: 20170207
  Serious: No
  Sender: FDA-Public Use
  Company Number: US-ENDO PHARMACEUTICALS INC.-2016-006211

PATIENT
  Age: 52 Year
  Sex: Female
  Weight: 77.18 kg

DRUGS (4)
  1. MULTIVITAMIN-MULTIMINERAL [Concomitant]
     Indication: ROUTINE HEALTH MAINTENANCE
  2. ADVIL [Concomitant]
     Active Substance: IBUPROFEN
     Indication: INFLAMMATION
  3. FLONASE [Concomitant]
     Active Substance: FLUTICASONE PROPIONATE
     Indication: HYPERSENSITIVITY
  4. PENICILLIN V POTASSIUM TABLETS 500 MG [Suspect]
     Active Substance: PENICILLIN V POTASSIUM
     Indication: PROPHYLAXIS
     Route: 065
     Dates: start: 20161007

REACTIONS (1)
  - Faeces discoloured [Not Recovered/Not Resolved]

NARRATIVE: CASE EVENT DATE: 20161009
